FAERS Safety Report 23154956 (Version 1)
Quarter: 2023Q4

REPORT INFORMATION
  Report Type: Spontaneous
  Country: None (occurrence: FR)
  Receive Date: 20231107
  Receipt Date: 20231107
  Transmission Date: 20240109
  Serious: Yes (Life-Threatening, Hospitalization, Other)
  Sender: FDA-Public Use
  Company Number: FR-B.Braun Medical Inc.-2147948

PATIENT
  Age: 22 Year
  Sex: Male

DRUGS (10)
  1. SODIUM CHLORIDE [Suspect]
     Active Substance: SODIUM CHLORIDE
     Indication: Fluid replacement
  2. PROPOFOL [Suspect]
     Active Substance: PROPOFOL
  3. HYDROCORTISONE HEMISUCCINATE [Suspect]
     Active Substance: HYDROCORTISONE HEMISUCCINATE
  4. ATRACURIUM [Suspect]
     Active Substance: ATRACURIUM
  5. NIMBEX [Suspect]
     Active Substance: CISATRACURIUM BESYLATE
  6. CEFEPIME [Concomitant]
     Active Substance: CEFEPIME HYDROCHLORIDE
  7. NOREPINEPHRINE [Concomitant]
     Active Substance: NOREPINEPHRINE
  8. SUFENTANIL CITRATE [Concomitant]
     Active Substance: SUFENTANIL CITRATE
  9. THIOPENTAL SODIUM [Concomitant]
     Active Substance: THIOPENTAL SODIUM
  10. MIDAZOLAM [Concomitant]
     Active Substance: MIDAZOLAM

REACTIONS (5)
  - Rhabdomyolysis [None]
  - Hyperkalaemia [None]
  - Hypertriglyceridaemia [None]
  - Myoglobinaemia [None]
  - Lactic acidosis [None]
